FAERS Safety Report 18369081 (Version 2)
Quarter: 2020Q4

REPORT INFORMATION
  Report Type: Spontaneous
  Country: CN (occurrence: CN)
  Receive Date: 20201011
  Receipt Date: 20201025
  Transmission Date: 20210114
  Serious: No
  Sender: FDA-Public Use
  Company Number: CN-BEH-2020122568

PATIENT
  Age: 41 Year
  Sex: Male

DRUGS (1)
  1. ALBURX [Suspect]
     Active Substance: ALBUMIN HUMAN
     Dosage: FOR 2 TO 3 DAYS OR 3 TO 4 DAYS
     Route: 065

REACTIONS (6)
  - Product colour issue [Unknown]
  - Hepatic cancer [Fatal]
  - Incorrect dose administered [Unknown]
  - No adverse event [Unknown]
  - Product contamination physical [Unknown]
  - Protein albumin ratio increased [Unknown]
